FAERS Safety Report 21182953 (Version 1)
Quarter: 2022Q3

REPORT INFORMATION
  Report Type: Spontaneous
  Country: FR (occurrence: FR)
  Receive Date: 20220808
  Receipt Date: 20220808
  Transmission Date: 20221027
  Serious: Yes (Life-Threatening)
  Sender: FDA-Public Use
  Company Number: None

PATIENT
  Age: 82 Year
  Sex: Male

DRUGS (1)
  1. DICLOFENAC [Suspect]
     Active Substance: DICLOFENAC
     Indication: Back pain
     Dosage: LP 75 MG
     Route: 048
     Dates: start: 20220304, end: 20220313

REACTIONS (3)
  - Septic shock [Recovering/Resolving]
  - Peritonitis [Recovering/Resolving]
  - Large intestine perforation [Recovering/Resolving]

NARRATIVE: CASE EVENT DATE: 20220313
